FAERS Safety Report 11806171 (Version 2)
Quarter: 2015Q4

REPORT INFORMATION
  Report Type: Spontaneous
  Country: US (occurrence: US)
  Receive Date: 20151207
  Receipt Date: 20151207
  Transmission Date: 20160305
  Serious: Yes (Other)
  Sender: FDA-Public Use
  Company Number: US-HOSPIRA-2702349

PATIENT
  Age: 83 Year
  Sex: Male
  Weight: 94.6 kg

DRUGS (3)
  1. VANCOMYCIN HYDROCHLORIDE. [Suspect]
     Active Substance: VANCOMYCIN HYDROCHLORIDE
     Indication: BACTERAEMIA
     Route: 042
     Dates: start: 20141108, end: 20141111
  2. VANCOMYCIN HYDROCHLORIDE. [Suspect]
     Active Substance: VANCOMYCIN HYDROCHLORIDE
     Indication: BACTERAEMIA
     Route: 042
     Dates: start: 20141108, end: 20141111
  3. STERILE WATER [Suspect]
     Active Substance: WATER
     Indication: MEDICATION DILUTION
     Dosage: NOT REPORTED
     Route: 042

REACTIONS (4)
  - Poor quality drug administered [Recovered/Resolved]
  - Nephropathy toxic [Recovered/Resolved]
  - Product colour issue [Recovered/Resolved]
  - Product quality issue [Recovered/Resolved]
